FAERS Safety Report 10024603 (Version 1)
Quarter: 2014Q1

REPORT INFORMATION
  Report Type: Spontaneous
  Country: US (occurrence: None)
  Receive Date: 20140304
  Receipt Date: 20140304
  Transmission Date: 20141002
  Serious: Yes (Death, Other)
  Sender: FDA-Public Use
  Company Number: KV201300264

PATIENT
  Sex: 0

DRUGS (1)
  1. MAKENA [Suspect]
     Dates: start: 20130716, end: 20131022

REACTIONS (2)
  - Necrotising enterocolitis neonatal [None]
  - Premature baby [None]
